FAERS Safety Report 19634836 (Version 3)
Quarter: 2021Q3

REPORT INFORMATION
  Report Type: Spontaneous
  Country: US (occurrence: US)
  Receive Date: 20210730
  Receipt Date: 20210805
  Transmission Date: 20211014
  Serious: No
  Sender: FDA-Public Use
  Company Number: NVSC2021US149635

PATIENT
  Sex: Male

DRUGS (2)
  1. LIDOCAINE. [Suspect]
     Active Substance: LIDOCAINE
     Indication: INFECTION
     Dosage: UNK
     Route: 065
     Dates: start: 2009
  2. CEFTRIAXONE. [Suspect]
     Active Substance: CEFTRIAXONE
     Indication: INFECTION
     Dosage: 1 G, UNKNOWN
     Route: 065
     Dates: start: 2009

REACTIONS (5)
  - Drug ineffective [Unknown]
  - Product colour issue [Unknown]
  - Malaise [Unknown]
  - Product physical consistency issue [Unknown]
  - Product solubility abnormal [Unknown]
